FAERS Safety Report 8239351-1 (Version None)
Quarter: 2012Q1

REPORT INFORMATION
  Report Type: 
  Country: None (occurrence: None)
  Receive Date: 20120326
  Receipt Date: 20120316
  Transmission Date: 20120608
  Serious: Yes (Hospitalization)
  Sender: FDA-Public Use
  Company Number: 216741

PATIENT
  Sex: Male

DRUGS (1)
  1. INNOHEP [Suspect]
     Indication: PHLEBITIS
     Dosage: CURATIVE,SUBCUTANEOUS
     Route: 058

REACTIONS (4)
  - OFF LABEL USE [None]
  - THROMBOSIS [None]
  - MEDICATION ERROR [None]
  - DISEASE RECURRENCE [None]
